FAERS Safety Report 8137395-1 (Version None)
Quarter: 2012Q1

REPORT INFORMATION
  Report Type: 
  Country: None (occurrence: None)
  Receive Date: 20120215
  Receipt Date: 20120207
  Transmission Date: 20120608
  Serious: Yes (Other)
  Sender: FDA-Public Use
  Company Number: IT-JNJFOC-20120106072

PATIENT
  Sex: Female

DRUGS (1)
  1. TOPAMAX [Suspect]
     Indication: HEADACHE
     Dosage: UNKNOWN DOSE
     Route: 048
     Dates: start: 20120115, end: 20120115

REACTIONS (3)
  - CONFUSIONAL STATE [None]
  - SELF INJURIOUS BEHAVIOUR [None]
  - HEADACHE [None]
